FAERS Safety Report 12788030 (Version 2)
Quarter: 2016Q4

REPORT INFORMATION
  Report Type: Spontaneous
  Country: DE (occurrence: DE)
  Receive Date: 20160928
  Receipt Date: 20161021
  Transmission Date: 20170207
  Serious: Yes (Hospitalization, Other)
  Sender: FDA-Public Use
  Company Number: DE-BAYER-2016-187107

PATIENT
  Age: 54 Year
  Sex: Female

DRUGS (2)
  1. TRIAMTEREN HCT AL [Concomitant]
  2. MIRENA [Suspect]
     Active Substance: LEVONORGESTREL
     Indication: MENORRHAGIA
     Dosage: 20 MCG/24HR, CONT
     Route: 015
     Dates: start: 20121206

REACTIONS (13)
  - Irritable bowel syndrome [None]
  - Anaphylactic reaction [None]
  - Anaphylactic reaction [None]
  - Anaphylactic reaction [None]
  - Tryptase increased [None]
  - Histamine intolerance [None]
  - Bronchitis [None]
  - Anaphylactic reaction [None]
  - Anaphylactic reaction [None]
  - Anaphylactic reaction [None]
  - Drug intolerance [None]
  - Anaphylactic reaction [None]
  - Anaphylactic reaction [None]

NARRATIVE: CASE EVENT DATE: 20140421
